FAERS Safety Report 23448732 (Version 2)
Quarter: 2025Q1

REPORT INFORMATION
  Report Type: Other
  Country: US (occurrence: US)
  Receive Date: 20240127
  Receipt Date: 20250210
  Transmission Date: 20250408
  Serious: No
  Sender: TRAVERE THERAPEUTICS
  Company Number: US-TRAVERE-2023TVT00852

PATIENT
  Sex: Female

DRUGS (1)
  1. FILSPARI [Suspect]
     Active Substance: SPARSENTAN
     Indication: IgA nephropathy
     Route: 048
     Dates: end: 202501

REACTIONS (2)
  - Anaemia [Unknown]
  - Drug effect less than expected [Unknown]
